FAERS Safety Report 5037523-0 (Version None)
Quarter: 2006Q2

REPORT INFORMATION
  Report Type: 
  Country: None (occurrence: None)
  Receive Date: 20060626
  Receipt Date: 20060612
  Transmission Date: 20061013
  Serious: Yes (Death, Hospitalization, Other)
  Sender: FDA-Public Use
  Company Number: A-CH2006-12290

PATIENT
  Age: 75 Year
  Sex: Female
  Weight: 62 kg

DRUGS (9)
  1. TRACLEER [Suspect]
     Indication: PULMONARY HYPERTENSION
     Dosage: 125 MG, BID, ORAL; 62.5 MG, BID, ORAL
     Route: 048
     Dates: start: 20050518, end: 20050705
  2. TRACLEER [Suspect]
     Indication: PULMONARY HYPERTENSION
     Dosage: 125 MG, BID, ORAL; 62.5 MG, BID, ORAL
     Route: 048
     Dates: start: 20050706, end: 20060512
  3. DILTIAZEM HYDROCHLORIDE [Concomitant]
  4. ZESTRIL [Concomitant]
  5. REMODULIN [Concomitant]
  6. SINTROM [Concomitant]
  7. ZOCOR [Concomitant]
  8. LASIX [Concomitant]
  9. OXYGEN (OXYGEN) [Concomitant]

REACTIONS (4)
  - CHOLECYSTITIS [None]
  - HEPATITIS TOXIC [None]
  - HIP FRACTURE [None]
  - SUDDEN DEATH [None]
